FAERS Safety Report 4923837-9 (Version None)
Quarter: 2006Q1

REPORT INFORMATION
  Report Type: 
  Country: None (occurrence: None)
  Receive Date: 20060224
  Receipt Date: 20060224
  Transmission Date: 20060701
  Serious: No
  Sender: FDA-Public Use
  Company Number: None

PATIENT
  Sex: Male
  Weight: 95.2554 kg

DRUGS (2)
  1. ZICAM COLD REMEDY MATRIX INITIATIVES, INC. [Suspect]
     Indication: NASOPHARYNGITIS
     Dosage: 1 SPRAY ONCE DAILY OTIC (3 USES)
     Dates: start: 20030101
  2. ZICAM COLD REMEDY MATRIX INITIATIVES, INC. [Suspect]
     Indication: SINUS DISORDER
     Dosage: 1 SPRAY ONCE DAILY OTIC (3 USES)
     Dates: start: 20030101

REACTIONS (4)
  - AGEUSIA [None]
  - ANOSMIA [None]
  - CONDITION AGGRAVATED [None]
  - SINUS DISORDER [None]
